FAERS Safety Report 6898772-X (Version None)
Quarter: 2010Q3

REPORT INFORMATION
  Report Type: 
  Country: None (occurrence: None)
  Receive Date: 20100802
  Receipt Date: 20071123
  Transmission Date: 20110219
  Serious: No
  Sender: FDA-Public Use
  Company Number: US-PFIZER INC-2007078976

PATIENT
  Sex: Female
  Weight: 49 kg

DRUGS (5)
  1. LYRICA [Suspect]
     Indication: FIBROMYALGIA
     Route: 048
     Dates: start: 20070701, end: 20070801
  2. CYMBALTA [Concomitant]
  3. TEMAZEPAM [Concomitant]
  4. TRAMADOL HYDROCHLORIDE [Concomitant]
  5. ATENOLOL [Concomitant]

REACTIONS (2)
  - SLEEP DISORDER [None]
  - SOMNAMBULISM [None]
